FAERS Safety Report 4983277-3 (Version None)
Quarter: 2006Q2

REPORT INFORMATION
  Report Type: 
  Country: None (occurrence: None)
  Receive Date: 20060419
  Receipt Date: 20060403
  Transmission Date: 20061013
  Serious: Yes (Other)
  Sender: FDA-Public Use
  Company Number: DSA_27924_2006

PATIENT
  Age: 48 Year
  Sex: Male
  Weight: 60 kg

DRUGS (1)
  1. RENIVACE [Suspect]
     Dosage: 150 MG ONCE PO
     Route: 048
     Dates: start: 20060308, end: 20060308

REACTIONS (2)
  - OVERDOSE [None]
  - SUICIDE ATTEMPT [None]
